FAERS Safety Report 4367197-3 (Version None)
Quarter: 2004Q2

REPORT INFORMATION
  Report Type: 
  Country: None (occurrence: None)
  Receive Date: 20040524
  Receipt Date: 20040511
  Transmission Date: 20050107
  Serious: Yes (Hospitalization)
  Sender: FDA-Public Use
  Company Number: US-JNJFOC-20040403188

PATIENT
  Age: 15 Year
  Sex: Female
  Weight: 62.1428 kg

DRUGS (3)
  1. RISPERDAL [Suspect]
     Indication: SCHIZOPHRENIA
     Dosage: 0.1 ML, 1 IN 1 DAY, ORAL
     Route: 048
     Dates: start: 20040409, end: 20040411
  2. ZOLOFT [Concomitant]
  3. STRATTERA (ALL OTHER THERAPEUTIC PRODUCTS) [Concomitant]

REACTIONS (2)
  - PERICARDITIS [None]
  - PNEUMOTHORAX [None]
